FAERS Safety Report 5156869-9 (Version None)
Quarter: 2006Q4

REPORT INFORMATION
  Report Type: 
  Country: None (occurrence: None)
  Receive Date: 20061115
  Receipt Date: 20061106
  Transmission Date: 20070319
  Serious: Yes (Hospitalization, Other)
  Sender: FDA-Public Use
  Company Number: 149541ISR

PATIENT
  Age: 84 Year
  Sex: Female

DRUGS (2)
  1. ATENOLOL [Suspect]
     Dosage: ORAL
     Route: 048
     Dates: start: 20061019, end: 20061021
  2. RAMIPRIL [Suspect]
     Dosage: ORAL
     Route: 048
     Dates: end: 20061021

REACTIONS (2)
  - ANGIONEUROTIC OEDEMA [None]
  - HYPERSENSITIVITY [None]
